FAERS Safety Report 9817954 (Version 1)
Quarter: 2014Q1

REPORT INFORMATION
  Report Type: Spontaneous
  Country: US (occurrence: None)
  Receive Date: 20140110
  Receipt Date: 20140110
  Transmission Date: 20141002
  Serious: Yes (Hospitalization)
  Sender: FDA-Public Use
  Company Number: None

PATIENT
  Age: 45 Year
  Sex: Female

DRUGS (3)
  1. RIBAVIRIN [Suspect]
     Indication: COMA HEPATIC
     Dosage: TAKE 2 TABLETS (400 MG) TWO TIMES A DAY
     Dates: start: 20131002, end: 20131221
  2. PEGASYS PROCLICK [Concomitant]
  3. INCIVEK [Concomitant]

REACTIONS (5)
  - Haemoglobin decreased [None]
  - Blood pressure decreased [None]
  - Platelet count decreased [None]
  - Renal impairment [None]
  - Laboratory test abnormal [None]
